FAERS Safety Report 4821309-3 (Version None)
Quarter: 2005Q4

REPORT INFORMATION
  Report Type: 
  Country: None (occurrence: None)
  Receive Date: 20051107
  Receipt Date: 20050729
  Transmission Date: 20060501
  Serious: No
  Sender: FDA-Public Use
  Company Number: US-GLAXOSMITHKLINE-A0568288A

PATIENT
  Age: 68 Year
  Sex: Female

DRUGS (7)
  1. AVANDAMET [Suspect]
     Route: 048
     Dates: start: 20050713, end: 20050719
  2. LISINOPRIL [Concomitant]
  3. ATENOLOL [Concomitant]
  4. STOOL SOFTENER [Concomitant]
  5. SPIRONOLACTONE [Concomitant]
  6. CATAPRES-TTS-3 [Concomitant]
  7. XANAX [Concomitant]

REACTIONS (5)
  - DIARRHOEA [None]
  - HAEMORRHOIDAL HAEMORRHAGE [None]
  - HAEMORRHOIDS [None]
  - MUSCLE SPASMS [None]
  - NERVOUSNESS [None]
